FAERS Safety Report 8240926-4 (Version None)
Quarter: 2012Q1

REPORT INFORMATION
  Report Type: 
  Country: None (occurrence: None)
  Receive Date: 20120328
  Receipt Date: 20120314
  Transmission Date: 20120608
  Serious: Yes (Other)
  Sender: FDA-Public Use
  Company Number: GR-CELGENEUS-066-21660-12022465

PATIENT
  Sex: Female

DRUGS (4)
  1. ABRAXANE [Suspect]
     Route: 041
     Dates: start: 20120125, end: 20120125
  2. LEVOTHYROXINE SODIUM [Concomitant]
     Indication: HYPOTHYROIDISM
     Dosage: .1 MILLIGRAM
     Route: 065
     Dates: start: 19920101
  3. OMEPRAZOLE [Concomitant]
     Indication: GASTRITIS
     Dosage: 20 MILLIGRAM
     Route: 065
     Dates: start: 20110101
  4. ACETAMINOPHEN [Concomitant]
     Indication: PAIN
     Route: 065

REACTIONS (1)
  - HAEMOLYTIC ANAEMIA [None]
